FAERS Safety Report 15345286 (Version 1)
Quarter: 2018Q3

REPORT INFORMATION
  Report Type: Spontaneous
  Country: US (occurrence: US)
  Receive Date: 20180903
  Receipt Date: 20180903
  Transmission Date: 20181010
  Serious: No
  Sender: FDA-Public Use
  Company Number: US-009507513-1809USA000452

PATIENT
  Sex: Female

DRUGS (2)
  1. INVANZ [Suspect]
     Active Substance: ERTAPENEM SODIUM
     Indication: URINARY TRACT INFECTION
  2. INVANZ [Suspect]
     Active Substance: ERTAPENEM SODIUM
     Indication: MULTIPLE-DRUG RESISTANCE
     Dosage: 1GM/ONCE A DAY FOR 7 DAYS
     Route: 030

REACTIONS (1)
  - Circumstance or information capable of leading to medication error [Unknown]

NARRATIVE: CASE EVENT DATE: 201808
